FAERS Safety Report 18309180 (Version 2)
Quarter: 2021Q2

REPORT INFORMATION
  Report Type: Spontaneous
  Country: US (occurrence: US)
  Receive Date: 20200924
  Receipt Date: 20210430
  Transmission Date: 20210717
  Serious: Yes (Hospitalization, Other)
  Sender: FDA-Public Use
  Company Number: US-PURDUE-USA-2020-0167331

PATIENT
  Sex: Male

DRUGS (22)
  1. BUTRANS [Suspect]
     Active Substance: BUPRENORPHINE
     Indication: PAIN
     Dosage: UNK
     Route: 062
  2. OXYCODONE HYDROCHLORIDE (SIMILAR TO NDA 22?272) [Suspect]
     Active Substance: OXYCODONE HYDROCHLORIDE
     Indication: BREAKTHROUGH PAIN
     Dosage: 30 MG, UNK
     Route: 048
     Dates: start: 20120413, end: 20161215
  3. OXYCONTIN [Suspect]
     Active Substance: OXYCODONE HYDROCHLORIDE
     Dosage: 10 MG, TOOK FOR 8 YEARS
     Route: 048
     Dates: start: 20070820
  4. BUPRENORPHINE TRANSDERMAL PATCH (SIMILAR TO NDA 21?306) [Suspect]
     Active Substance: BUPRENORPHINE
     Indication: PAIN
     Dosage: UNK
     Route: 062
  5. MORPHINE SULFATE EXTENDED?RELEASE TABLETS (RHODES 74?769, 74?862) [Suspect]
     Active Substance: MORPHINE SULFATE
     Indication: PAIN
     Dosage: 30 MG, UNK, 1 TAB BY MOUTH EVERY 12 HOURS
     Route: 048
     Dates: start: 2010, end: 2017
  6. OXYCODONE HYDROCHLORIDE (SIMILAR TO NDA 22?272) [Suspect]
     Active Substance: OXYCODONE HYDROCHLORIDE
     Dosage: 15 MG, UNK
     Route: 048
     Dates: start: 20120413, end: 20161215
  7. OXYCODONE HYDROCHLORIDE (SIMILAR TO NDA 22?272) [Suspect]
     Active Substance: OXYCODONE HYDROCHLORIDE
     Dosage: 10 MG, Q6H PRN
     Route: 048
     Dates: start: 201701, end: 201808
  8. OXY IR [Suspect]
     Active Substance: OXYCODONE HYDROCHLORIDE
     Indication: PAIN
     Dosage: UNK
     Route: 065
  9. OXYCONTIN [Suspect]
     Active Substance: OXYCODONE HYDROCHLORIDE
     Indication: PAIN
     Dosage: 20 MG, BID
     Route: 048
  10. DILAUDID [Suspect]
     Active Substance: HYDROMORPHONE HYDROCHLORIDE
     Indication: PAIN
     Dosage: UNK
     Route: 048
  11. MORPHINE SULFATE (SIMILAR TO NDA 19?516) [Suspect]
     Active Substance: MORPHINE SULFATE
     Indication: PAIN
     Dosage: UNK
     Route: 048
  12. TRAMADOL CR TABLETS (RHODES 21?745) [Suspect]
     Active Substance: TRAMADOL
     Indication: PAIN
     Dosage: 50 MG, PRN, 1 TAB BY MOUTH EVERY 6 HOURS
     Route: 048
     Dates: start: 20110714, end: 20110813
  13. MS CONTIN [Suspect]
     Active Substance: MORPHINE SULFATE
     Indication: PAIN
     Dosage: UNK
     Route: 048
  14. HYDROCODONE BITARTRATE (SIMILAR TO NDA 206627) [Suspect]
     Active Substance: HYDROCODONE BITARTRATE
     Indication: PAIN
     Dosage: UNK
     Route: 048
  15. OXYCONTIN [Suspect]
     Active Substance: OXYCODONE HYDROCHLORIDE
     Dosage: 20 MG, 1 TAB BY MOUTH EVERY 8 HOURS
     Route: 048
     Dates: start: 20100701, end: 201808
  16. RYZOLT [Suspect]
     Active Substance: TRAMADOL HYDROCHLORIDE
     Indication: PAIN
     Dosage: UNK
     Route: 065
  17. HYDROMORPHONE TABLETS [Suspect]
     Active Substance: HYDROMORPHONE
     Indication: PAIN
     Dosage: UNK
     Route: 048
  18. OXYCODONE/ ACETAMINOPHEN TABLETS [Suspect]
     Active Substance: ACETAMINOPHEN\OXYCODONE HYDROCHLORIDE
     Indication: PAIN
     Dosage: 5?325 MG, 1 TAB BY MOUTH EVERY 6 HOURS
     Route: 048
     Dates: start: 20100923, end: 20120418
  19. FENTANYL. [Suspect]
     Active Substance: FENTANYL
     Indication: PRODUCT USED FOR UNKNOWN INDICATION
     Dosage: 25 MCG/HR, 1 PATCH EVERY 72 HOURS
     Route: 062
     Dates: start: 20161115, end: 20161215
  20. OXYCODONE HCL CR TABLETS (SIMILAR TO NDA 22?272) [Suspect]
     Active Substance: OXYCODONE HYDROCHLORIDE
     Indication: PAIN
     Dosage: UNK
     Route: 048
  21. OXYCODONE HYDROCHLORIDE (SIMILAR TO NDA 22?272) [Suspect]
     Active Substance: OXYCODONE HYDROCHLORIDE
     Dosage: 5 MG, TOOK FOR 8 YEARS
     Route: 048
     Dates: start: 20070830
  22. ENDOCET [Suspect]
     Active Substance: ACETAMINOPHEN\OXYCODONE HYDROCHLORIDE
     Indication: PRODUCT USED FOR UNKNOWN INDICATION
     Dosage: 5?325 MG, PRN, 1 TAB BY MOUTH EVERY 6 HOURS
     Route: 048
     Dates: start: 20100212, end: 20100111

REACTIONS (18)
  - Substance abuse [Unknown]
  - Emotional distress [Unknown]
  - Mental disorder [Unknown]
  - Mental impairment [Unknown]
  - Tooth injury [Unknown]
  - Thinking abnormal [Unknown]
  - Seizure [Unknown]
  - Quality of life decreased [Unknown]
  - Constipation [Unknown]
  - Substance-induced psychotic disorder [Unknown]
  - Overdose [Unknown]
  - Drug dependence [Not Recovered/Not Resolved]
  - Insomnia [Unknown]
  - Sexual dysfunction [Unknown]
  - Gastrointestinal disorder [Unknown]
  - Rhabdomyolysis [Unknown]
  - Pain [Unknown]
  - Drug withdrawal syndrome [Unknown]
